FAERS Safety Report 6168569-7 (Version None)
Quarter: 2009Q2

REPORT INFORMATION
  Report Type: 
  Country: None (occurrence: None)
  Receive Date: 20090427
  Receipt Date: 20090420
  Transmission Date: 20091009
  Serious: Yes (Other)
  Sender: FDA-Public Use
  Company Number: CA-BRISTOL-MYERS SQUIBB COMPANY-14593818

PATIENT
  Age: 73 Year
  Sex: Male

DRUGS (6)
  1. WARFARIN SODIUM [Suspect]
     Indication: CARDIOVASCULAR DISORDER
     Dosage: TAKEN FOR SEVERAL MONTHS
  2. ASPIRIN [Suspect]
     Indication: CARDIOVASCULAR DISORDER
     Dosage: TAKEN FOR SEVERAL MONTHS
  3. AMIODARONE HCL [Suspect]
     Indication: CARDIOVASCULAR DISORDER
     Dosage: TAKEN FOR SEVERAL MONTHS
  4. LEVOTHYROXINE SODIUM [Suspect]
     Indication: CARDIOVASCULAR DISORDER
     Dosage: TAKEN FOR SEVERAL MONTHS
  5. FERROUS GLUCONATE [Suspect]
     Indication: IRON DEFICIENCY ANAEMIA
     Dosage: TAKEN FOR SEVERAL MONTHS
  6. LASIX [Suspect]
     Indication: CARDIOVASCULAR DISORDER
     Dosage: TAKEN FOR SEVERAL MONTHS

REACTIONS (2)
  - COLITIS [None]
  - PHLEBITIS [None]
